FAERS Safety Report 9373447 (Version 2)
Quarter: 2013Q3

REPORT INFORMATION
  Report Type: Report from Study
  Country: NL (occurrence: NL)
  Receive Date: 20130627
  Receipt Date: 20130705
  Transmission Date: 20140515
  Serious: Yes (Death)
  Sender: FDA-Public Use
  Company Number: NL-BAXTER-2013BAX023204

PATIENT
  Age: 62 Year
  Sex: Female

DRUGS (22)
  1. ENDOXAN I.V., POEDER VOOR OPLOSSING VOOR INJECTIE 200, 500, 1000 MG [Suspect]
     Indication: DIFFUSE LARGE B-CELL LYMPHOMA
     Route: 065
     Dates: start: 20130514
  2. ENDOXAN I.V., POEDER VOOR OPLOSSING VOOR INJECTIE 200, 500, 1000 MG [Suspect]
     Route: 042
     Dates: start: 20130528
  3. RHUPH20 [Suspect]
     Indication: DIFFUSE LARGE B-CELL LYMPHOMA
     Route: 058
     Dates: start: 20130528
  4. RHUPH20 [Suspect]
     Route: 058
     Dates: start: 20130528
  5. DOXORUBICIN [Suspect]
     Indication: DIFFUSE LARGE B-CELL LYMPHOMA
     Route: 065
     Dates: start: 20130514
  6. DOXORUBICIN [Suspect]
     Route: 042
  7. VINCRISTINE SULFATE [Suspect]
     Indication: DIFFUSE LARGE B-CELL LYMPHOMA
     Route: 065
     Dates: start: 20130514
  8. VINCRISTINE SULFATE [Suspect]
     Route: 062
     Dates: start: 20130528
  9. PREDNISONE [Suspect]
     Indication: DIFFUSE LARGE B-CELL LYMPHOMA
     Route: 065
     Dates: start: 20130514
  10. PREDNISONE [Suspect]
     Route: 065
     Dates: start: 20130528
  11. RITUXIMAB [Suspect]
     Indication: DIFFUSE LARGE B-CELL LYMPHOMA
     Route: 065
     Dates: start: 20130514
  12. RITUXIMAB [Suspect]
     Route: 058
     Dates: start: 20130528
  13. PANTOPRAZOL [Concomitant]
     Indication: PRODUCT USED FOR UNKNOWN INDICATION
     Route: 048
     Dates: start: 20130508
  14. ORAMORPH [Concomitant]
     Indication: PRODUCT USED FOR UNKNOWN INDICATION
     Route: 048
  15. ALLOPURINOL [Concomitant]
     Indication: PRODUCT USED FOR UNKNOWN INDICATION
     Route: 065
     Dates: start: 20130508, end: 20130602
  16. METOCLOPRAMIDE [Concomitant]
     Indication: PRODUCT USED FOR UNKNOWN INDICATION
     Route: 065
     Dates: start: 20130514
  17. MOVICOLON [Concomitant]
     Indication: CONSTIPATION PROPHYLAXIS
     Route: 048
     Dates: start: 20130514
  18. CO-TRIMOXAZOLE [Concomitant]
     Indication: PRODUCT USED FOR UNKNOWN INDICATION
     Route: 065
     Dates: start: 20130514
  19. GRANISETRON [Concomitant]
     Indication: PROPHYLAXIS
     Route: 048
     Dates: start: 20130514
  20. LIDOCAINE [Concomitant]
     Indication: PRODUCT USED FOR UNKNOWN INDICATION
     Route: 048
     Dates: start: 20130530
  21. PARACETAMOL [Concomitant]
     Indication: PRODUCT USED FOR UNKNOWN INDICATION
     Route: 048
     Dates: start: 20130514
  22. PARACETAMOL [Concomitant]
     Route: 048
     Dates: start: 20130602

REACTIONS (3)
  - Hepatic enzyme increased [Fatal]
  - Febrile neutropenia [Fatal]
  - Herpes simplex hepatitis [Fatal]
